FAERS Safety Report 20102687 (Version 1)
Quarter: 2021Q4

REPORT INFORMATION
  Report Type: Spontaneous
  Country: US (occurrence: US)
  Receive Date: 20211123
  Receipt Date: 20211123
  Transmission Date: 20220303
  Serious: Yes (Other)
  Sender: FDA-Public Use
  Company Number: US-NOVARTISPH-NVSC2021US264497

PATIENT
  Sex: Male

DRUGS (4)
  1. DOCETAXEL [Suspect]
     Active Substance: DOCETAXEL
     Indication: Product used for unknown indication
     Dosage: 4 CYCLES (75% DOSE) C1
     Route: 065
     Dates: start: 20210623
  2. DOCETAXEL [Suspect]
     Active Substance: DOCETAXEL
     Dosage: (85% DOSE) C5
     Route: 065
     Dates: start: 20210922
  3. DOCETAXEL [Suspect]
     Active Substance: DOCETAXEL
     Dosage: (85% DOSE) C6
     Route: 065
     Dates: start: 20211013
  4. ZOMETA [Suspect]
     Active Substance: ZOLEDRONIC ACID
     Indication: Product used for unknown indication
     Dosage: UNK
     Route: 065
     Dates: start: 202105

REACTIONS (3)
  - Cytopenia [Unknown]
  - Neoplasm [Unknown]
  - Prostatic specific antigen [Unknown]
